FAERS Safety Report 8219035-6 (Version None)
Quarter: 2012Q1

REPORT INFORMATION
  Report Type: 
  Country: None (occurrence: None)
  Receive Date: 20120319
  Receipt Date: 20120315
  Transmission Date: 20120608
  Serious: Yes (Hospitalization)
  Sender: FDA-Public Use
  Company Number: US-PFIZER INC-2012068527

PATIENT
  Sex: Female
  Weight: 136 kg

DRUGS (1)
  1. LYRICA [Suspect]
     Indication: BACK PAIN
     Dosage: UNK
     Route: 048
     Dates: start: 20120301, end: 20120301

REACTIONS (3)
  - LIVER DISORDER [None]
  - MALAISE [None]
  - BACK PAIN [None]
